FAERS Safety Report 6348193-3 (Version None)
Quarter: 2009Q3

REPORT INFORMATION
  Report Type: 
  Country: None (occurrence: None)
  Receive Date: 20090908
  Receipt Date: 20090827
  Transmission Date: 20100115
  Serious: Yes (Life-Threatening, Hospitalization, Other)
  Sender: FDA-Public Use
  Company Number: 2009-200701-NL

PATIENT
  Age: 59 Year
  Sex: Male
  Weight: 60 kg

DRUGS (6)
  1. ESLAX (ROCURONIUM BROMIDE) [Suspect]
     Indication: HYPOTONIA
     Dosage: 50 MG; ONCE; IV
     Route: 042
     Dates: start: 20090612, end: 20090612
  2. ISOZOL (CON.) [Concomitant]
  3. FENTANYL (CON.) [Concomitant]
  4. PROPOFOL (CON.) [Concomitant]
  5. ULTIVA (CON.) [Concomitant]
  6. MIOBLOCK (CON.) [Concomitant]

REACTIONS (3)
  - ANAPHYLACTIC SHOCK [None]
  - ERYTHEMA [None]
  - SKIN TEST POSITIVE [None]
